FAERS Safety Report 6056942-7 (Version None)
Quarter: 2009Q1

REPORT INFORMATION
  Report Type: 
  Country: None (occurrence: None)
  Receive Date: 20090126
  Receipt Date: 20090126
  Transmission Date: 20090719
  Serious: No
  Sender: FDA-Public Use
  Company Number: None

PATIENT
  Sex: Female
  Weight: 78.9259 kg

DRUGS (4)
  1. AMLODIPINE [Suspect]
     Dosage: AMLODIPINE 5MG. ONCE DAILY ORAL
     Route: 048
     Dates: start: 20080501, end: 20080731
  2. BENAZEPRIL 10 MG. UNKNOWN GENERIC MANUFACTURER [Suspect]
     Dosage: BENAZEPRIL 10 MG. ONCE DAILY ORAL
     Route: 048
  3. CLONIDINE HCL [Concomitant]
  4. METFORMIN HCL [Concomitant]

REACTIONS (2)
  - BLOOD PRESSURE INCREASED [None]
  - URTICARIA [None]
